FAERS Safety Report 19765366 (Version 2)
Quarter: 2021Q3

REPORT INFORMATION
  Report Type: Spontaneous
  Country: KR (occurrence: KR)
  Receive Date: 20210830
  Receipt Date: 20210914
  Transmission Date: 20211014
  Serious: Yes (Hospitalization, Other)
  Sender: FDA-Public Use
  Company Number: KR-SA-2021SA283554

PATIENT
  Age: 75 Year
  Sex: Female

DRUGS (1)
  1. TOUJEO [Suspect]
     Active Substance: INSULIN GLARGINE
     Indication: DIABETES MELLITUS MANAGEMENT
     Dosage: UNK
     Route: 058
     Dates: start: 2016

REACTIONS (6)
  - Limb injury [Recovered/Resolved]
  - Hypoglycaemia [Recovered/Resolved]
  - Vascular occlusion [Recovered/Resolved]
  - Product storage error [Unknown]
  - Skin weeping [Recovered/Resolved]
  - End stage renal disease [Unknown]

NARRATIVE: CASE EVENT DATE: 202106
